FAERS Safety Report 5108443-8 (Version None)
Quarter: 2006Q3

REPORT INFORMATION
  Report Type: 
  Country: None (occurrence: None)
  Receive Date: 20060731
  Receipt Date: 20060608
  Transmission Date: 20061208
  Serious: No
  Sender: FDA-Public Use
  Company Number: 2006PV015269

PATIENT
  Age: 80 Year
  Sex: Female
  Weight: 77.1115 kg

DRUGS (2)
  1. BYETTA [Suspect]
     Indication: DIABETES MELLITUS NON-INSULIN-DEPENDENT
     Dosage: 5 MCB;BID;SC
     Route: 058
     Dates: start: 20060520
  2. NOVOLOG [Concomitant]

REACTIONS (4)
  - AGITATION [None]
  - BLOOD GLUCOSE [None]
  - DRUG EFFECT DECREASED [None]
  - TREMOR [None]
